FAERS Safety Report 6914533-7 (Version None)
Quarter: 2010Q3

REPORT INFORMATION
  Report Type: 
  Country: None (occurrence: None)
  Receive Date: 20100804
  Receipt Date: 20100720
  Transmission Date: 20110219
  Serious: Yes (Other)
  Sender: FDA-Public Use
  Company Number: AUR-APL-2010-01940

PATIENT
  Sex: Male

DRUGS (6)
  1. HYDROCHLOROTHIAZIDE [Suspect]
     Dosage: 12.5MG, DAILY
  2. SIMVASTATIN [Suspect]
     Indication: BLOOD CHOLESTEROL INCREASED
  3. TOVIAZ [Suspect]
     Indication: HYPERTONIC BLADDER
     Dosage: 8MG-DAILY-ORAL
     Route: 048
     Dates: start: 20100719
  4. TOVIAZ [Suspect]
     Indication: HYPERTONIC BLADDER
     Dosage: 4 MG-DAILY
     Dates: start: 20100101
  5. FLOMAX [Suspect]
  6. AVODART [Suspect]

REACTIONS (3)
  - DRUG INTERACTION [None]
  - URINARY RETENTION [None]
  - URINE FLOW DECREASED [None]
